FAERS Safety Report 6670683-4 (Version None)
Quarter: 2010Q2

REPORT INFORMATION
  Report Type: 
  Country: None (occurrence: None)
  Receive Date: 20100407
  Receipt Date: 20100329
  Transmission Date: 20101027
  Serious: Yes (Other)
  Sender: FDA-Public Use
  Company Number: CA-JNJFOC-20100400237

PATIENT

DRUGS (4)
  1. REMICADE [Suspect]
     Indication: ANKYLOSING SPONDYLITIS
     Dosage: TO PRESENT
     Route: 042
  2. REMICADE [Suspect]
     Route: 042
  3. CELEBREX [Concomitant]
  4. PREDNISONE TAB [Concomitant]

REACTIONS (3)
  - FATIGUE [None]
  - MUSCULOSKELETAL STIFFNESS [None]
  - SWELLING FACE [None]
